FAERS Safety Report 23559531 (Version 2)
Quarter: 2024Q1

REPORT INFORMATION
  Report Type: Report from Study
  Country: US (occurrence: US)
  Receive Date: 20240223
  Receipt Date: 20240318
  Transmission Date: 20240409
  Serious: No
  Sender: FDA-Public Use
  Company Number: US-Vifor (International) Inc.-VIT-2024-01533

PATIENT
  Sex: Female
  Weight: 106 kg

DRUGS (1)
  1. VELPHORO [Suspect]
     Active Substance: SUCROFERRIC OXYHYDROXIDE
     Indication: Product used for unknown indication
     Dosage: 0.5 DF DAILY
     Route: 048
     Dates: start: 20230928

REACTIONS (2)
  - Underdose [Unknown]
  - No adverse event [Unknown]

NARRATIVE: CASE EVENT DATE: 20230928
